FAERS Safety Report 8501867 (Version 3)
Quarter: 2012Q4

REPORT INFORMATION
  Report Type: 
  Country: US (occurrence: US)
  Receive Date: 20120410
  Receipt Date: 20120907
  Transmission Date: 20130627
  Serious: Yes (Hospitalization)
  Sender: FDA-Public Use
  Company Number: US-BAYER-2012-032789

PATIENT
  Age: 44 Year
  Sex: Female
  Weight: 83.9 kg

DRUGS (13)
  1. YAZ [Suspect]
     Indication: CONTRACEPTION
     Dosage: UNK
     Dates: start: 20031226, end: 20101015
  2. YAZ [Suspect]
     Indication: MIGRAINE
     Dosage: UNK
     Dates: start: 2007, end: 2010
  3. YASMIN [Suspect]
     Indication: CONTRACEPTION
     Dosage: UNK
     Dates: start: 20031226, end: 20101015
  4. YASMIN [Suspect]
     Indication: CONTRACEPTION
     Dosage: UNK
     Dates: start: 2003, end: 2006
  5. GIANVI [Suspect]
     Indication: CONTRACEPTION
     Dosage: UNK
     Dates: start: 20101015, end: 20110716
  6. DEXAMETHASONE [Concomitant]
     Indication: MIGRAINE
     Dosage: 4 mg, PRN
     Dates: start: 20110330, end: 20111209
  7. METOPROLOL [Concomitant]
     Dosage: 25 mg, BID
     Dates: start: 20110330, end: 20110624
  8. TRAMADOL [Concomitant]
     Indication: PAIN
     Dosage: 50 mg, 1-2tablets 4-6hours as needed
     Route: 048
     Dates: start: 20110330
  9. HYDROCODONE/ACETAMINOPHEN [Concomitant]
     Indication: PAIN
     Dosage: 5-500 mg 1-2 tablets 4-6 hours as needed
     Dates: start: 20110330, end: 20110824
  10. VERAPAMIL [Concomitant]
     Dosage: UNK UNK, TID
     Route: 048
     Dates: start: 20110418
  11. ONDANSETRON [Concomitant]
     Dosage: UNK, every 6 hours
     Route: 048
     Dates: start: 20110428, end: 20110824
  12. SIMVASTATIN [Concomitant]
     Dosage: 1 tablet every night
     Route: 048
  13. FLEXERIL [Concomitant]
     Indication: MUSCLE STRAIN
     Dosage: 10 mg, UNK
     Route: 048
     Dates: start: 20111128

REACTIONS (7)
  - Pulmonary embolism [None]
  - Deep vein thrombosis [Recovered/Resolved]
  - Injury [None]
  - Oedema peripheral [Recovered/Resolved]
  - Chest pain [None]
  - Palpitations [None]
  - Dyspnoea [None]
